FAERS Safety Report 23239735 (Version 1)
Quarter: 2023Q4

REPORT INFORMATION
  Report Type: Spontaneous
  Country: BG (occurrence: BG)
  Receive Date: 20231129
  Receipt Date: 20231129
  Transmission Date: 20240110
  Serious: Yes (Other)
  Sender: FDA-Public Use
  Company Number: BG-Merck Healthcare KGaA-2023490116

PATIENT
  Age: 76 Year
  Sex: Female

DRUGS (1)
  1. AVELUMAB [Suspect]
     Active Substance: AVELUMAB
     Indication: Neuroendocrine carcinoma of the skin
     Dosage: 1 HOUR
     Route: 042
     Dates: start: 20230713

REACTIONS (2)
  - Thrombocytopenia [Unknown]
  - Ascites [Unknown]
